FAERS Safety Report 6706102-9 (Version None)
Quarter: 2010Q2

REPORT INFORMATION
  Report Type: 
  Country: None (occurrence: None)
  Receive Date: 20100503
  Receipt Date: 20100426
  Transmission Date: 20101027
  Serious: Yes (Other)
  Sender: FDA-Public Use
  Company Number: BR-PFIZER INC-2010052299

PATIENT
  Age: 61 Year
  Sex: Female
  Weight: 63 kg

DRUGS (1)
  1. CELEBRA [Suspect]
     Indication: TENDONITIS
     Dosage: 200 MG, UNK
     Route: 048
     Dates: start: 20100408

REACTIONS (5)
  - GENERALISED OEDEMA [None]
  - HEADACHE [None]
  - OCULAR HYPERAEMIA [None]
  - SENSORY LOSS [None]
  - URTICARIA [None]
